FAERS Safety Report 8150738-8 (Version None)
Quarter: 2012Q1

REPORT INFORMATION
  Report Type: 
  Country: None (occurrence: None)
  Receive Date: 20120220
  Receipt Date: 20120209
  Transmission Date: 20120608
  Serious: Yes (Death, Other)
  Sender: FDA-Public Use
  Company Number: CN-MPIJNJ-2012-00218

PATIENT

DRUGS (12)
  1. GLUTATHIONE [Concomitant]
     Dosage: 2.4 G, UNK
  2. OMEPRAZOLE [Concomitant]
     Dosage: 40 MG, UNK
     Route: 042
  3. CIMETIDINE [Concomitant]
  4. FUROSEMIDE [Concomitant]
  5. DEXAMETHASONE [Concomitant]
     Dosage: 10 MG, UNK
     Route: 042
  6. ADENOSINE [Concomitant]
     Dosage: 40 MG, UNK
     Route: 042
  7. GRANISETRON [Concomitant]
     Dosage: 3 MG, UNK
     Route: 042
  8. VELCADE [Suspect]
     Indication: MULTIPLE MYELOMA
     Dosage: 2 MG, UNK
     Route: 042
     Dates: start: 20111130, end: 20120103
  9. MECOBALAMIN [Concomitant]
     Dosage: 500 MG, UNK
  10. GLYCYRRHIZA EXTRACT [Concomitant]
     Dosage: 80 ML, UNK
  11. SALVIA MILTIORRHIZA [Concomitant]
  12. ASPIRIN [Concomitant]
     Indication: CORONARY ARTERY DISEASE

REACTIONS (1)
  - ASTHMA [None]
